FAERS Safety Report 8417744 (Version 4)
Quarter: 2012Q4

REPORT INFORMATION
  Report Type: 
  Country: US (occurrence: US)
  Receive Date: 20120221
  Receipt Date: 20121112
  Transmission Date: 20130627
  Serious: Yes (Hospitalization, Other)
  Sender: FDA-Public Use
  Company Number: US-PFIZER INC-2012043213

PATIENT
  Age: 52 Year
  Sex: Female
  Weight: 79.37 kg

DRUGS (7)
  1. LYRICA [Suspect]
     Indication: FIBROMYALGIA
     Dosage: 75 mg, 2x/day
     Dates: end: 2012
  2. LYRICA [Suspect]
     Dosage: UNK
  3. NEURONTIN [Suspect]
     Indication: DISORDER JOINT
     Dosage: 1200 mg, 2x/day
  4. NEURONTIN [Suspect]
     Indication: LEG DISCOMFORT
  5. CELEBREX [Suspect]
     Indication: NEUROPATHY
     Dosage: 200 mg, 2x/day
  6. PLAVIX [Concomitant]
     Indication: HEART DISORDER
     Dosage: 75 mg, daily
  7. CRESTOR [Concomitant]
     Dosage: 40 mg, Daily

REACTIONS (4)
  - Myocardial infarction [Unknown]
  - Laboratory test abnormal [Unknown]
  - Pain in extremity [Unknown]
  - Arthralgia [Unknown]
